FAERS Safety Report 8135309-1 (Version None)
Quarter: 2012Q1

REPORT INFORMATION
  Report Type: 
  Country: None (occurrence: None)
  Receive Date: 20120214
  Receipt Date: 20120208
  Transmission Date: 20120608
  Serious: Yes (Hospitalization)
  Sender: FDA-Public Use
  Company Number: US-PFIZER INC-2012035206

PATIENT
  Sex: Male
  Weight: 114.29 kg

DRUGS (1)
  1. BENEFIX [Suspect]
     Dosage: UNK

REACTIONS (3)
  - FALL [None]
  - HAEMATOMA [None]
  - DIZZINESS [None]
